FAERS Safety Report 5063447-9 (Version None)
Quarter: 2006Q3

REPORT INFORMATION
  Report Type: 
  Country: None (occurrence: None)
  Receive Date: 20060727
  Receipt Date: 20060623
  Transmission Date: 20061208
  Serious: Yes (Other)
  Sender: FDA-Public Use
  Company Number: US-GLAXOSMITHKLINE-A0610408A

PATIENT
  Age: 37 Year
  Sex: Female

DRUGS (3)
  1. COMBIVIR [Suspect]
     Indication: HIV INFECTION
     Dosage: 2TAB PER DAY
     Route: 048
     Dates: start: 20060509
  2. VIRACEPT [Concomitant]
     Dosage: 2500MG PER DAY
     Route: 048
     Dates: start: 20060509
  3. ZIDOVUDINE [Concomitant]
     Indication: ANTIVIRAL PROPHYLAXIS
     Dosage: 431MG SINGLE DOSE
     Route: 042
     Dates: start: 20060707, end: 20060707

REACTIONS (4)
  - AUTOSOMAL CHROMOSOME ANOMALY [None]
  - DRUG EXPOSURE DURING PREGNANCY [None]
  - NORMAL NEWBORN [None]
  - TRISOMY 21 [None]
